FAERS Safety Report 25873514 (Version 1)
Quarter: 2025Q4

REPORT INFORMATION
  Report Type: Spontaneous
  Country: RU (occurrence: RU)
  Receive Date: 20251002
  Receipt Date: 20251002
  Transmission Date: 20260117
  Serious: Yes (Death, Other)
  Sender: SANOFI AVENTIS
  Company Number: RU-SA-2025SA292298

PATIENT
  Age: 17 Year

DRUGS (2)
  1. BELUMOSUDIL MESYLATE [Suspect]
     Active Substance: BELUMOSUDIL MESYLATE
     Dosage: UNK
  2. SIROLIMUS [Concomitant]
     Active Substance: SIROLIMUS
     Dosage: UNK

REACTIONS (3)
  - Pneumonia [Fatal]
  - Sepsis [Fatal]
  - C-reactive protein increased [Fatal]
